FAERS Safety Report 24045379 (Version 1)
Quarter: 2024Q3

REPORT INFORMATION
  Report Type: Spontaneous
  Country: FR (occurrence: FR)
  Receive Date: 20240703
  Receipt Date: 20240703
  Transmission Date: 20241016
  Serious: Yes (Hospitalization)
  Sender: TEVA
  Company Number: None

PATIENT
  Age: 42 Year
  Sex: Female
  Weight: 83 kg

DRUGS (7)
  1. OFLOXACIN [Suspect]
     Active Substance: OFLOXACIN
     Indication: Uterine abscess
     Route: 048
     Dates: start: 20230915, end: 20231006
  2. LEVOTHYROXINE [Concomitant]
     Active Substance: LEVOTHYROXINE\LEVOTHYROXINE SODIUM
     Indication: Product used for unknown indication
     Route: 065
  3. BACTRIM [Suspect]
     Active Substance: SULFAMETHOXAZOLE\TRIMETHOPRIM
     Indication: Uterine abscess
     Route: 048
     Dates: start: 20230915, end: 20231006
  4. FERROUS SULFATE [Suspect]
     Active Substance: FERROUS SULFATE
     Indication: Vitamin supplementation
     Route: 048
     Dates: start: 20230915, end: 20231011
  5. LEUCOVORIN CALCIUM [Suspect]
     Active Substance: LEUCOVORIN CALCIUM
     Indication: Vitamin supplementation
     Route: 048
     Dates: start: 20230915, end: 20231012
  6. XOLAIR [Concomitant]
     Active Substance: OMALIZUMAB
     Indication: Product used for unknown indication
     Route: 065
  7. IOMERON [Suspect]
     Active Substance: IOMEPROL
     Indication: Computerised tomogram
     Dosage: IOMERON 300 (300 MG IODINE PER ML)
     Route: 042
     Dates: start: 20230908, end: 20230908

REACTIONS (2)
  - Hepatitis acute [Recovered/Resolved]
  - Rash maculo-papular [Recovered/Resolved]

NARRATIVE: CASE EVENT DATE: 20230925
